FAERS Safety Report 4996261-0 (Version None)
Quarter: 2006Q2

REPORT INFORMATION
  Report Type: 
  Country: None (occurrence: None)
  Receive Date: 20060505
  Receipt Date: 20060419
  Transmission Date: 20061013
  Serious: Yes (Hospitalization, Other)
  Sender: FDA-Public Use
  Company Number: BR-2006-002902

PATIENT
  Age: 59 Year
  Sex: Male

DRUGS (8)
  1. BETAFERON (INTERFERON BETA - 1B) INJECTION, 250UG [Suspect]
     Indication: MULTIPLE SCLEROSIS
     Dosage: MIU, EVERY 2D, SUBCUTANEOUS
     Route: 058
     Dates: start: 20060211, end: 20060218
  2. DIURESAL [Concomitant]
  3. ENALAPRIL MALEATE [Concomitant]
  4. SERUM PHYSIOLOGICAL [Concomitant]
  5. POTASSIUM (POTASSIUM) [Concomitant]
  6. VITAMIN B SOLUTION [Concomitant]
  7. VITAMIN C SOLUTION [Concomitant]
  8. DIPIRONA (METAMIZOLE) [Concomitant]

REACTIONS (15)
  - ARTHRALGIA [None]
  - ASTHENIA [None]
  - CHILLS [None]
  - CONVULSION [None]
  - FATIGUE [None]
  - FEELING HOT [None]
  - HYPERAEMIA [None]
  - INJECTION SITE REACTION [None]
  - LOSS OF CONSCIOUSNESS [None]
  - MUSCLE SPASMS [None]
  - NAUSEA [None]
  - NIGHTMARE [None]
  - PYREXIA [None]
  - URINARY TRACT INFECTION [None]
  - VOMITING [None]
